FAERS Safety Report 9023510 (Version 1)
Quarter: 2013Q1

REPORT INFORMATION
  Report Type: Spontaneous
  Country: US (occurrence: US)
  Receive Date: 20130121
  Receipt Date: 20130121
  Transmission Date: 20140127
  Serious: No
  Sender: FDA-Public Use
  Company Number: US-009507513-1301USA008467

PATIENT
  Sex: Female

DRUGS (2)
  1. SINGULAIR [Suspect]
     Indication: DYSPNOEA
     Route: 048
  2. MONTELUKAST SODIUM [Suspect]

REACTIONS (2)
  - Mouth ulceration [Unknown]
  - Drug ineffective [Unknown]
